FAERS Safety Report 25254377 (Version 5)
Quarter: 2025Q4

REPORT INFORMATION
  Report Type: Spontaneous
  Country: US (occurrence: None)
  Receive Date: 20250430
  Receipt Date: 20251205
  Transmission Date: 20260117
  Serious: Yes (Other)
  Sender: UCB
  Company Number: US-UCBSA-2024058428

PATIENT
  Age: 60 Year
  Weight: 65.77 kg

DRUGS (2)
  1. CIMZIA [Suspect]
     Active Substance: CERTOLIZUMAB PEGOL
     Indication: Rheumatoid arthritis
     Dosage: 400 MILLIGRAM, EV 4 WEEKS
  2. CIMZIA [Suspect]
     Active Substance: CERTOLIZUMAB PEGOL
     Dosage: 400 MILLIGRAM, EV 4 WEEKS

REACTIONS (7)
  - Nephrolithiasis [Unknown]
  - Ear tube insertion [Unknown]
  - Sinus disorder [Recovered/Resolved]
  - Nasopharyngitis [Recovered/Resolved]
  - Road traffic accident [Unknown]
  - Injection site discolouration [Unknown]
  - Product dose omission issue [Unknown]
